FAERS Safety Report 12334397 (Version 5)
Quarter: 2017Q3

REPORT INFORMATION
  Report Type: Report from Study
  Country: BR (occurrence: BR)
  Receive Date: 20160504
  Receipt Date: 20170804
  Transmission Date: 20171127
  Serious: Yes (Other)
  Sender: FDA-Public Use
  Company Number: PHHY2015BR164341

PATIENT
  Sex: Female
  Weight: 97 kg

DRUGS (11)
  1. SANDOSTATIN LAR DEPOT [Suspect]
     Active Substance: OCTREOTIDE ACETATE
     Indication: ACROMEGALY
     Dosage: 20 MG, EVERY 8 WEEKS
     Route: 030
     Dates: start: 2010
  2. FLUOXETINE [Concomitant]
     Active Substance: FLUOXETINE HYDROCHLORIDE
     Indication: PRODUCT USED FOR UNKNOWN INDICATION
     Route: 065
  3. CABERGOLINE. [Concomitant]
     Active Substance: CABERGOLINE
     Indication: ACROMEGALY
     Dosage: 5 MG (1 DF), QW
     Route: 065
     Dates: start: 2007
  4. PURAN [Concomitant]
     Active Substance: LEVOTHYROXINE SODIUM
     Dosage: 4 DF (125 MG), QD (2 YEARS AGO)
     Route: 048
  5. QUETIAPINE HEMIFUMARATE [Concomitant]
     Active Substance: QUETIAPINE FUMARATE
     Indication: INSOMNIA
     Dosage: 1 DF, QD
     Route: 065
  6. TAMISA [Concomitant]
     Active Substance: ETHINYL ESTRADIOL\GESTODENE
     Indication: AMENORRHOEA
     Dosage: UNK UNK, QMO
     Route: 065
  7. SANDOSTATIN LAR DEPOT [Suspect]
     Active Substance: OCTREOTIDE ACETATE
     Dosage: 20 MG, EVERY 6 WEEKS
     Route: 030
     Dates: end: 20151210
  8. VALPROIC ACID. [Concomitant]
     Active Substance: VALPROIC ACID
     Indication: MIGRAINE
     Dosage: 2 DF, QD
     Route: 048
     Dates: start: 201510
  9. SANDOSTATIN LAR DEPOT [Suspect]
     Active Substance: OCTREOTIDE ACETATE
     Dosage: 20 MG, QMO (EVERY 28 DAYS)
     Route: 030
     Dates: start: 2010
  10. DOSTINEX [Concomitant]
     Active Substance: CABERGOLINE
     Indication: ACROMEGALY
     Dosage: 1 DF, QW
     Route: 065
  11. PURAN [Concomitant]
     Active Substance: LEVOTHYROXINE SODIUM
     Indication: POST PROCEDURAL HYPOTHYROIDISM
     Dosage: 1 DF (50 MG), QD
     Route: 048
     Dates: start: 2015

REACTIONS (8)
  - Renal disorder [Unknown]
  - Inappropriate schedule of drug administration [Unknown]
  - Cholelithiasis [Recovering/Resolving]
  - Weight fluctuation [Unknown]
  - Hypertension [Not Recovered/Not Resolved]
  - Nephrolithiasis [Recovering/Resolving]
  - Galactorrhoea [Unknown]
  - Renal pain [Not Recovered/Not Resolved]

NARRATIVE: CASE EVENT DATE: 2014
